FAERS Safety Report 5613486-1 (Version None)
Quarter: 2008Q1

REPORT INFORMATION
  Report Type: 
  Country: None (occurrence: None)
  Receive Date: 20080129
  Receipt Date: 20080117
  Transmission Date: 20080703
  Serious: Yes (Death, Other)
  Sender: FDA-Public Use
  Company Number: 2008-00169

PATIENT
  Age: 52 Year
  Sex: Male
  Weight: 68 kg

DRUGS (2)
  1. VELCADE [Suspect]
     Indication: MULTIPLE MYELOMA
     Dosage: 1.30 MG/M2, INTRAVENOUS
     Route: 042
     Dates: start: 20071210, end: 20080114
  2. DEXAMETHASONE TAB [Concomitant]

REACTIONS (2)
  - BRAIN STEM INFARCTION [None]
  - NEPHROTIC SYNDROME [None]
